FAERS Safety Report 8771002 (Version 1)
Quarter: 2012Q4

REPORT INFORMATION
  Report Type: 
  Country: CN (occurrence: CN)
  Receive Date: 20120906
  Receipt Date: 20120906
  Transmission Date: 20130627
  Serious: Yes (Hospitalization)
  Sender: FDA-Public Use
  Company Number: CN-JNJFOC-20120813602

PATIENT
  Age: 27 Year
  Sex: Female
  Weight: 50 kg

DRUGS (2)
  1. TYLENOL COLD [Suspect]
     Indication: DEPRESSED MOOD
     Route: 048
     Dates: start: 20120826, end: 20120826
  2. TYLENOL COLD , CHILDRENS [Suspect]
     Indication: INSOMNIA
     Route: 048
     Dates: start: 20120826, end: 20120826

REACTIONS (6)
  - Loss of consciousness [Recovered/Resolved]
  - Hypoaesthesia oral [Recovered/Resolved]
  - Aphasia [Recovered/Resolved]
  - Vomiting [Recovered/Resolved]
  - Somnolence [Recovered/Resolved]
  - Overdose [Recovered/Resolved]
